FAERS Safety Report 7608191-6 (Version None)
Quarter: 2011Q3

REPORT INFORMATION
  Report Type: 
  Country: None (occurrence: None)
  Receive Date: 20110714
  Receipt Date: 20110630
  Transmission Date: 20111222
  Serious: Yes (Hospitalization)
  Sender: FDA-Public Use
  Company Number: JP-CELGENEUS-087-21880-11051803

PATIENT
  Sex: Male

DRUGS (8)
  1. REVLIMID [Suspect]
     Indication: MULTIPLE MYELOMA
     Dosage: 10 MILLIGRAM
     Route: 048
     Dates: start: 20110114, end: 20110131
  2. ROHYPNOL [Concomitant]
     Indication: ILL-DEFINED DISORDER
     Dosage: 2 MILLIGRAM
     Route: 048
     Dates: start: 20110204, end: 20110303
  3. METHYCOBAL [Concomitant]
     Indication: ILL-DEFINED DISORDER
     Dosage: .5 MILLIGRAM
     Route: 048
     Dates: start: 20101014, end: 20110203
  4. REVLIMID [Suspect]
     Dosage: 5 MILLIGRAM
     Route: 048
     Dates: start: 20110201, end: 20110203
  5. WARFARIN POTASSIUM [Concomitant]
     Dosage: 1.5 MILLIGRAM
     Route: 048
     Dates: start: 20110128, end: 20110203
  6. ZOLPIDEM [Concomitant]
     Indication: ILL-DEFINED DISORDER
     Dosage: 10 MILLIGRAM
     Route: 048
     Dates: start: 20100310, end: 20110303
  7. WARFARIN POTASSIUM [Concomitant]
     Indication: ILL-DEFINED DISORDER
     Dosage: 2 MILLIGRAM
     Route: 048
     Dates: start: 20100910, end: 20110127
  8. WARFARIN POTASSIUM [Concomitant]
     Dosage: 1 MILLIGRAM
     Route: 048
     Dates: start: 20110204, end: 20110206

REACTIONS (6)
  - RENAL IMPAIRMENT [None]
  - RHABDOMYOLYSIS [None]
  - PYREXIA [None]
  - HAEMOGLOBIN DECREASED [None]
  - CONSTIPATION [None]
  - SEBORRHOEIC DERMATITIS [None]
